FAERS Safety Report 4643495-0 (Version None)
Quarter: 2005Q2

REPORT INFORMATION
  Report Type: 
  Country: None (occurrence: None)
  Receive Date: 20050325
  Receipt Date: 20050217
  Transmission Date: 20051028
  Serious: No
  Sender: FDA-Public Use
  Company Number: IND-AE-05-SAN-008

PATIENT
  Age: 73 Year
  Sex: Male
  Weight: 126.1 kg

DRUGS (5)
  1. SANCTURA [Suspect]
     Indication: HYPERTONIC BLADDER
     Dosage: 20MG-BID-ORAL
     Route: 048
     Dates: start: 20041101, end: 20050203
  2. SANCTURA [Suspect]
     Indication: HYPERTONIC BLADDER
     Dosage: 20MG-BID-ORAL
     Route: 048
     Dates: start: 20050203, end: 20050217
  3. PEPCID [Concomitant]
  4. ATENOLOL [Concomitant]
  5. LIPITOR [Concomitant]

REACTIONS (3)
  - DRY MOUTH [None]
  - VISION BLURRED [None]
  - VISUAL ACUITY REDUCED [None]
